FAERS Safety Report 13435961 (Version 1)
Quarter: 2017Q2

REPORT INFORMATION
  Report Type: Spontaneous
  Country: US (occurrence: US)
  Receive Date: 20170412
  Receipt Date: 20170412
  Transmission Date: 20170830
  Serious: No
  Sender: FDA-Public Use
  Company Number: US-SA-2016SA070340

PATIENT
  Age: 49 Year
  Sex: Female

DRUGS (1)
  1. ALLEGRA [Suspect]
     Active Substance: FEXOFENADINE HYDROCHLORIDE
     Indication: HYPERSENSITIVITY
     Dosage: START DATE: LAST YEAR?END DATE: LAST SUMMER
     Route: 048

REACTIONS (5)
  - Arterial disorder [Unknown]
  - Migraine [Unknown]
  - Drug hypersensitivity [Unknown]
  - Intentional underdose [Unknown]
  - Hypoaesthesia [Unknown]
